FAERS Safety Report 13778305 (Version 1)
Quarter: 2017Q3

REPORT INFORMATION
  Report Type: Spontaneous
  Country: US (occurrence: US)
  Receive Date: 20170721
  Receipt Date: 20170721
  Transmission Date: 20171127
  Serious: No
  Sender: FDA-Public Use
  Company Number: US-ST. RENATUS-2017STR00022

PATIENT
  Age: 26 Year
  Weight: 70.3 kg

DRUGS (3)
  1. UNSPECIFIED MULTIVITAMIN [Concomitant]
  2. KOVANAZE [Suspect]
     Active Substance: OXYMETAZOLINE HYDROCHLORIDE\TETRACAINE HYDROCHLORIDE
     Indication: DENTAL CARE
     Dosage: UNK, ONCE
     Dates: start: 20170411, end: 20170411
  3. PLEXUS BIO CLEANSE [Concomitant]

REACTIONS (2)
  - Oral pain [Recovered/Resolved]
  - Nasal discomfort [Recovered/Resolved]

NARRATIVE: CASE EVENT DATE: 20170411
